FAERS Safety Report 6709957-7 (Version None)
Quarter: 2010Q2

REPORT INFORMATION
  Report Type: 
  Country: None (occurrence: None)
  Receive Date: 20100503
  Receipt Date: 20100503
  Transmission Date: 20101027
  Serious: No
  Sender: FDA-Public Use
  Company Number: None

PATIENT
  Age: 2 Year
  Sex: Female
  Weight: 15.8759 kg

DRUGS (1)
  1. CHILDREN'S BENADRYL ALLERGY [Suspect]
     Indication: ARTHROPOD STING
     Dosage: 1 TSO ONCE PO
     Route: 048
     Dates: start: 20100430, end: 20100430

REACTIONS (1)
  - DERMATITIS DIAPER [None]
